FAERS Safety Report 25023422 (Version 3)
Quarter: 2025Q2

REPORT INFORMATION
  Report Type: Spontaneous
  Country: NL (occurrence: NL)
  Receive Date: 20250228
  Receipt Date: 20250512
  Transmission Date: 20250717
  Serious: Yes (Hospitalization)
  Sender: BAUSCH AND LOMB
  Company Number: NL-BAUSCH-BL-2025-002631

PATIENT
  Age: 33 Year
  Sex: Female

DRUGS (1)
  1. IMIQUIMOD [Suspect]
     Active Substance: IMIQUIMOD
     Indication: Cervical dysplasia
     Dosage: THREE TIMES PER WEEK, VAGINALLY
     Route: 061

REACTIONS (1)
  - Bacteraemia [Recovered/Resolved]
